FAERS Safety Report 6257132-5 (Version None)
Quarter: 2009Q3

REPORT INFORMATION
  Report Type: 
  Country: None (occurrence: None)
  Receive Date: 20090706
  Receipt Date: 20090623
  Transmission Date: 20100115
  Serious: Yes (Congenital Anomaly)
  Sender: FDA-Public Use
  Company Number: D0061608A

PATIENT
  Sex: Female
  Weight: 3.6 kg

DRUGS (1)
  1. LAMICTAL [Suspect]
     Dosage: 50MG TWICE PER DAY
     Dates: start: 20010101

REACTIONS (2)
  - DRUG EXPOSURE DURING PREGNANCY [None]
  - TACHYARRHYTHMIA [None]
